FAERS Safety Report 5375674-1 (Version None)
Quarter: 2007Q2

REPORT INFORMATION
  Report Type: 
  Country: None (occurrence: None)
  Receive Date: 20070627
  Receipt Date: 20070620
  Transmission Date: 20071010
  Serious: Yes (Hospitalization)
  Sender: FDA-Public Use
  Company Number: 2007SP005427

PATIENT
  Age: 71 Year
  Sex: Female

DRUGS (2)
  1. VIRAFERONPEG [Suspect]
     Indication: HEPATITIS VIRAL
     Dosage: SC
     Route: 058
     Dates: start: 20060615, end: 20070315
  2. REBETOL [Suspect]
     Indication: HEPATITIS VIRAL
     Dosage: PO
     Route: 048
     Dates: start: 20060615, end: 20070315

REACTIONS (2)
  - DIPLOPIA [None]
  - EYELID PTOSIS [None]
